FAERS Safety Report 4878016-0 (Version None)
Quarter: 2006Q1

REPORT INFORMATION
  Report Type: 
  Country: None (occurrence: None)
  Receive Date: 20060110
  Receipt Date: 20051221
  Transmission Date: 20060701
  Serious: Yes (Hospitalization)
  Sender: FDA-Public Use
  Company Number: 2004028169

PATIENT
  Age: 67 Year
  Sex: Female
  Weight: 56 kg

DRUGS (6)
  1. NORVASC [Suspect]
     Indication: HYPERTENSION
     Dosage: 5 MG (5 MG, 1 IN 1 D), ORAL
     Route: 048
     Dates: start: 20030924, end: 20031201
  2. ATELEC (CILNIDIPINE) [Suspect]
     Indication: HYPERTENSION
     Dosage: 20 MG (20 MG, 1 IN 1 D)
     Dates: start: 20031201
  3. FAMOTIDINE [Suspect]
     Indication: GASTRIC ULCER
     Dosage: 20 MG (20 MG, 1 IN 1 D), ORAL
     Route: 048
     Dates: start: 20030401, end: 20040224
  4. DEPAS (ETIZOLAM) [Suspect]
     Indication: INSOMNIA
     Dosage: 1 IN 1 D, ORAL
     Route: 048
     Dates: start: 20030801
  5. PREDNISOLONE [Concomitant]
  6. METHYCOBAL (MECOBALAMIN) [Concomitant]

REACTIONS (25)
  - ANTINUCLEAR ANTIBODY POSITIVE [None]
  - ASCITES [None]
  - BLOOD LACTATE DEHYDROGENASE INCREASED [None]
  - CONJUNCTIVAL DISORDER [None]
  - DRUG TOXICITY [None]
  - EPISTAXIS [None]
  - ERYTHEMA [None]
  - GLOMERULONEPHROPATHY [None]
  - HAEMOLYTIC ANAEMIA [None]
  - HAPTOGLOBIN DECREASED [None]
  - HYPOALBUMINAEMIA [None]
  - HYPOCOMPLEMENTAEMIA [None]
  - IMMUNE SYSTEM DISORDER [None]
  - INSOMNIA [None]
  - LYMPHADENOPATHY [None]
  - NEPHROPATHY [None]
  - NORMOCHROMIC NORMOCYTIC ANAEMIA [None]
  - PLEURAL EFFUSION [None]
  - PROTEINURIA [None]
  - SYSTEMIC LUPUS ERYTHEMATOSUS [None]
  - THROMBOCYTOPENIA [None]
  - THROMBOTIC MICROANGIOPATHY [None]
  - THROMBOTIC THROMBOCYTOPENIC PURPURA [None]
  - URINE ANALYSIS ABNORMAL [None]
  - VASOCONSTRICTION [None]
